FAERS Safety Report 19389494 (Version 2)
Quarter: 2021Q3

REPORT INFORMATION
  Report Type: Spontaneous
  Country: JP (occurrence: JP)
  Receive Date: 20210608
  Receipt Date: 20210714
  Transmission Date: 20211014
  Serious: Yes (Other)
  Sender: FDA-Public Use
  Company Number: JP-BAYER-2021-152121

PATIENT
  Age: 83 Year
  Sex: Male

DRUGS (1)
  1. GLUCOBAY [Suspect]
     Active Substance: ACARBOSE
     Indication: DIABETES MELLITUS
     Dosage: UNK UNK, TID
     Route: 048

REACTIONS (2)
  - Platelet count decreased [Recovering/Resolving]
  - Internal haemorrhage [Recovering/Resolving]
